FAERS Safety Report 6306468-8 (Version None)
Quarter: 2009Q3

REPORT INFORMATION
  Report Type: 
  Country: None (occurrence: None)
  Receive Date: 20090810
  Receipt Date: 20090804
  Transmission Date: 20100115
  Serious: Yes (Death)
  Sender: FDA-Public Use
  Company Number: 2009US002903

PATIENT
  Age: 24 Year
  Sex: Female

DRUGS (3)
  1. PROGRAF [Suspect]
     Indication: AUTOIMMUNE HEPATITIS
     Dates: end: 20090617
  2. CYMBALTA [Concomitant]
  3. URSODIOL [Concomitant]

REACTIONS (2)
  - HEPATIC CIRRHOSIS [None]
  - HEPATIC FAILURE [None]
